FAERS Safety Report 15262279 (Version 1)
Quarter: 2018Q3

REPORT INFORMATION
  Report Type: Spontaneous
  Country: US (occurrence: US)
  Receive Date: 20180809
  Receipt Date: 20180809
  Transmission Date: 20181010
  Serious: No
  Sender: FDA-Public Use
  Company Number: US-SHIRE-US201830911

PATIENT
  Sex: Female

DRUGS (1)
  1. XIIDRA [Suspect]
     Active Substance: LIFITEGRAST
     Indication: PRODUCT USED FOR UNKNOWN INDICATION
     Route: 047

REACTIONS (6)
  - Headache [Unknown]
  - Abdominal pain upper [Unknown]
  - Eye pruritus [Unknown]
  - Nausea [Unknown]
  - Eyelid oedema [Unknown]
  - Instillation site reaction [Unknown]
